FAERS Safety Report 4694035-1 (Version None)
Quarter: 2005Q2

REPORT INFORMATION
  Report Type: 
  Country: None (occurrence: None)
  Receive Date: 20050616
  Receipt Date: 20050608
  Transmission Date: 20051028
  Serious: Yes (Hospitalization)
  Sender: FDA-Public Use
  Company Number: 200511379BCC

PATIENT
  Age: 40 Year
  Sex: Male
  Weight: 74.3899 kg

DRUGS (2)
  1. ALEVE (CAPLET) [Suspect]
     Indication: HEADACHE
     Dosage: 440 -880 MG, ORAL
     Route: 048
  2. ALEVE (CAPLET) [Suspect]
     Indication: SHOULDER PAIN
     Dosage: 440 -880 MG, ORAL
     Route: 048

REACTIONS (1)
  - MYOCARDIAL INFARCTION [None]
